FAERS Safety Report 8835891 (Version 1)
Quarter: 2012Q4

REPORT INFORMATION
  Report Type: 
  Country: US (occurrence: US)
  Receive Date: 20121011
  Receipt Date: 20121011
  Transmission Date: 20130627
  Serious: No
  Sender: FDA-Public Use
  Company Number: US-PFIZER INC-2012249144

PATIENT
  Age: 46 Year
  Sex: Male

DRUGS (1)
  1. INLYTA [Suspect]
     Indication: RENAL CANCER
     Dosage: 15 mg, 2x/day
     Route: 048
     Dates: start: 20120817, end: 20120917

REACTIONS (2)
  - Fatigue [Unknown]
  - Hypercalcaemia [Unknown]
